FAERS Safety Report 10250319 (Version 1)
Quarter: 2014Q2

REPORT INFORMATION
  Report Type: Spontaneous
  Country: US (occurrence: US)
  Receive Date: 20140620
  Receipt Date: 20140620
  Transmission Date: 20141212
  Serious: No
  Sender: FDA-Public Use
  Company Number: US-GILEAD-2014-0105701

PATIENT
  Age: 45 Year
  Sex: 0

DRUGS (3)
  1. SOVALDI [Suspect]
     Indication: PRODUCT USED FOR UNKNOWN INDICATION
     Route: 065
  2. PEGINTERFERON [Concomitant]
  3. RIBAVIRIN [Concomitant]

REACTIONS (1)
  - Chest pain [Unknown]
